FAERS Safety Report 4568183-0 (Version None)
Quarter: 2005Q1

REPORT INFORMATION
  Report Type: 
  Country: None (occurrence: None)
  Receive Date: 20050128
  Receipt Date: 20050113
  Transmission Date: 20050727
  Serious: No
  Sender: FDA-Public Use
  Company Number: 9784

PATIENT
  Age: 69 Year
  Sex: Male

DRUGS (18)
  1. MORPHINE [Suspect]
     Indication: ANALGESIC EFFECT
     Dosage: 20 MG BID, PO
     Route: 048
     Dates: start: 20041213, end: 20041214
  2. OXYCODONE HCL [Suspect]
     Indication: ANALGESIC EFFECT
     Dosage: 15 MG BID, PO
     Route: 048
     Dates: start: 20041214, end: 20041215
  3. ALLOPURINOL [Concomitant]
  4. ATENOLOL [Concomitant]
  5. ASPIRIN [Concomitant]
  6. CARBAMAZEPINE [Concomitant]
  7. TAMSULOSIN [Concomitant]
  8. ISOSORBIDE [Concomitant]
  9. NIFEDIPINE [Concomitant]
  10. LANSOPRAZOLE [Concomitant]
  11. ACETAMINOPHEN [Concomitant]
  12. CHLORPHENIRAMINE MALEATE [Concomitant]
  13. TINZAPARIN [Concomitant]
  14. POTASSIUM CHLORIDE/SODIUM CHLORIDE/SODIUM BICARBONATE/MACROGOL [Concomitant]
  15. CYCLIZINE [Concomitant]
  16. TRAMADOL HCL [Concomitant]
  17. CELECOXIB [Concomitant]
  18. LACTULOSE [Concomitant]

REACTIONS (2)
  - PHOTOPSIA [None]
  - VISION BLURRED [None]
